FAERS Safety Report 14575872 (Version 2)
Quarter: 2018Q3

REPORT INFORMATION
  Report Type: Spontaneous
  Country: ES (occurrence: ES)
  Receive Date: 20180227
  Receipt Date: 20180706
  Transmission Date: 20181010
  Serious: Yes (Other)
  Sender: FDA-Public Use
  Company Number: ES-IPSEN BIOPHARMACEUTICALS, INC.-2018-02749

PATIENT
  Age: 61 Year
  Sex: Male

DRUGS (3)
  1. SOMATULINA AUTOGEL 120MG [Suspect]
     Active Substance: LANREOTIDE ACETATE
     Indication: OFF LABEL USE
     Dosage: 120 MG
     Route: 065
  2. EVEROLIMUS. [Suspect]
     Active Substance: EVEROLIMUS
     Indication: NEUROENDOCRINE TUMOUR OF THE LUNG
  3. SOMATULINA AUTOGEL 120MG [Suspect]
     Active Substance: LANREOTIDE ACETATE
     Indication: NEUROENDOCRINE TUMOUR OF THE LUNG
     Dosage: 120 MG
     Route: 065

REACTIONS (12)
  - Inappropriate schedule of drug administration [Unknown]
  - Insomnia [Unknown]
  - Stool analysis abnormal [Unknown]
  - Glycosylated haemoglobin increased [Unknown]
  - Faecal elastase concentration decreased [Unknown]
  - Malignant neoplasm progression [Not Recovered/Not Resolved]
  - Pulmonary valve incompetence [Unknown]
  - Weight decreased [Not Recovered/Not Resolved]
  - Glomerular filtration rate decreased [Unknown]
  - Off label use [Unknown]
  - Tricuspid valve incompetence [Unknown]
  - Steatorrhoea [Unknown]
